FAERS Safety Report 4911510-2 (Version None)
Quarter: 2006Q1

REPORT INFORMATION
  Report Type: 
  Country: None (occurrence: None)
  Receive Date: 20060214
  Receipt Date: 20051004
  Transmission Date: 20060701
  Serious: Yes (Hospitalization, Other)
  Sender: FDA-Public Use
  Company Number: US-MERCK-0510USA02232

PATIENT
  Sex: Male
  Weight: 95 kg

DRUGS (22)
  1. VIOXX [Suspect]
     Indication: ARTHRITIS
     Route: 048
     Dates: start: 19990609, end: 20050101
  2. VIOXX [Suspect]
     Route: 048
     Dates: start: 19990609, end: 20050101
  3. THEOPHYLLINE [Concomitant]
     Route: 065
  4. LIPITOR [Concomitant]
     Route: 065
  5. LANOXIN [Concomitant]
     Route: 065
  6. RANITIDINE HYDROCHLORIDE [Concomitant]
     Route: 065
  7. METFORMIN [Concomitant]
     Route: 065
  8. AMPICILLIN [Concomitant]
     Route: 065
  9. TIZANIDINE HYDROCHLORIDE [Concomitant]
     Route: 065
  10. NEURONTIN [Concomitant]
     Route: 065
  11. HYDROCODONE HYDROCHLORIDE [Concomitant]
     Route: 065
  12. NITROQUICK [Concomitant]
     Route: 065
  13. AMOXICILLIN [Concomitant]
     Route: 065
  14. WARFARIN [Concomitant]
     Route: 065
  15. COREG [Concomitant]
     Route: 065
  16. GLUCOTROL [Concomitant]
     Route: 065
  17. PROCTOSOLL [Concomitant]
     Route: 065
  18. ZESTRIL [Concomitant]
     Route: 065
  19. VIAGRA [Concomitant]
     Route: 065
  20. AUGMENTIN '125' [Concomitant]
     Route: 065
  21. GLIPIZIDE [Concomitant]
     Route: 065
  22. MOTRIN [Concomitant]
     Route: 065

REACTIONS (18)
  - ANXIETY DISORDER [None]
  - AZOTAEMIA [None]
  - BLOOD GLUCOSE INCREASED [None]
  - CARDIAC DISORDER [None]
  - CHEST PAIN [None]
  - CHOLECYSTITIS ACUTE [None]
  - CHOLECYSTITIS INFECTIVE [None]
  - CHOLELITHIASIS [None]
  - CHRONIC OBSTRUCTIVE PULMONARY DISEASE [None]
  - DILATATION ATRIAL [None]
  - HAEMOPTYSIS [None]
  - HELICOBACTER PYLORI IDENTIFICATION TEST POSITIVE [None]
  - ILEUS [None]
  - MYOCARDIAL INFARCTION [None]
  - PROSTATE EXAMINATION ABNORMAL [None]
  - PULMONARY EMBOLISM [None]
  - RENAL FAILURE ACUTE [None]
  - URINARY RETENTION [None]
